FAERS Safety Report 17060144 (Version 1)
Quarter: 2019Q4

REPORT INFORMATION
  Report Type: Report from Study
  Country: CA (occurrence: CA)
  Receive Date: 20191121
  Receipt Date: 20191121
  Transmission Date: 20200122
  Serious: Yes (Death, Hospitalization, Other)
  Sender: FDA-Public Use
  Company Number: CA-PFIZER INC-2019499224

PATIENT
  Age: 67 Year
  Sex: Male

DRUGS (28)
  1. SANDOSTATIN [Suspect]
     Active Substance: OCTREOTIDE ACETATE
     Dosage: 60 MG, UNK
     Route: 030
  2. SANDOSTATIN [Suspect]
     Active Substance: OCTREOTIDE ACETATE
     Dosage: 30 MG, MONTHLY
     Route: 030
  3. AFINITOR [Suspect]
     Active Substance: EVEROLIMUS
     Indication: CARCINOID TUMOUR
     Dosage: UNK
     Route: 048
  4. SANDOSTATIN [Suspect]
     Active Substance: OCTREOTIDE ACETATE
     Dosage: UNK
     Route: 030
  5. SANDOSTATIN [Suspect]
     Active Substance: OCTREOTIDE ACETATE
     Dosage: 60 MG, UNK
     Route: 030
  6. SANDOSTATIN [Suspect]
     Active Substance: OCTREOTIDE ACETATE
     Dosage: 30 MG, MONTHLY
     Route: 030
  7. MORPHINE SULFATE. [Suspect]
     Active Substance: MORPHINE SULFATE
     Dosage: UNK
     Route: 065
  8. SANDOSTATIN [Suspect]
     Active Substance: OCTREOTIDE ACETATE
     Dosage: 50 MG, MONTHLY
     Route: 030
  9. SANDOSTATIN [Suspect]
     Active Substance: OCTREOTIDE ACETATE
     Dosage: 60 MG, MONTHLY
     Route: 030
  10. SANDOSTATIN [Suspect]
     Active Substance: OCTREOTIDE ACETATE
     Dosage: 100 UG, 3X/DAY
     Route: 058
  11. SANDOSTATIN [Suspect]
     Active Substance: OCTREOTIDE ACETATE
     Dosage: 60 MG, MONTHLY
     Route: 030
  12. SANDOSTATIN [Suspect]
     Active Substance: OCTREOTIDE ACETATE
     Dosage: 60 MG, UNK
     Route: 030
  13. PANCREATIN [Suspect]
     Active Substance: PANCRELIPASE
     Dosage: 1 DF, 3X/DAY
     Route: 065
  14. SANDOSTATIN [Suspect]
     Active Substance: OCTREOTIDE ACETATE
     Dosage: 60 MG, UNK
     Route: 030
  15. SANDOSTATIN [Suspect]
     Active Substance: OCTREOTIDE ACETATE
     Dosage: 60 MG, MONTHLY
     Route: 030
  16. SANDOSTATIN [Suspect]
     Active Substance: OCTREOTIDE ACETATE
     Dosage: 60 MG, MONTHLY
     Route: 030
  17. SANDOSTATIN [Suspect]
     Active Substance: OCTREOTIDE ACETATE
     Dosage: 30 MG, MONTHLY
     Route: 030
  18. SANDOSTATIN [Suspect]
     Active Substance: OCTREOTIDE ACETATE
     Dosage: 40 MG, MONTHLY
     Route: 030
  19. METOPROLOL. [Suspect]
     Active Substance: METOPROLOL
     Dosage: 150 MG, 2X/DAY
     Route: 048
  20. SANDOSTATIN [Suspect]
     Active Substance: OCTREOTIDE ACETATE
     Dosage: 100 UG, 3X/DAY
     Route: 058
  21. SANDOSTATIN [Suspect]
     Active Substance: OCTREOTIDE ACETATE
     Dosage: 60 MG, MONTHLY
     Route: 030
  22. SANDOSTATIN [Suspect]
     Active Substance: OCTREOTIDE ACETATE
     Dosage: UNK
     Route: 030
  23. PANCREATIN [Suspect]
     Active Substance: PANCRELIPASE
     Dosage: 3 DF, 3X/DAY
     Route: 065
  24. SANDOSTATIN [Suspect]
     Active Substance: OCTREOTIDE ACETATE
     Indication: CARCINOID TUMOUR
     Dosage: 30 MG, MONTHLY
     Route: 030
  25. SANDOSTATIN [Suspect]
     Active Substance: OCTREOTIDE ACETATE
     Dosage: 40 MG, MONTHLY
     Route: 030
  26. XARELTO [Concomitant]
     Active Substance: RIVAROXABAN
     Dosage: UNK
  27. METFORMIN [Suspect]
     Active Substance: METFORMIN HYDROCHLORIDE
     Indication: HYPERGLYCAEMIA
     Dosage: 500 MG, 3X/DAY
     Route: 048
  28. XARELTO [Concomitant]
     Active Substance: RIVAROXABAN
     Dosage: 20 MG, UNK
     Route: 065

REACTIONS (29)
  - Body temperature decreased [Fatal]
  - Urinary tract infection [Fatal]
  - Gastrointestinal disorder [Fatal]
  - Oropharyngeal pain [Fatal]
  - Blood pressure systolic increased [Fatal]
  - Constipation [Fatal]
  - Asthenia [Fatal]
  - Blood pressure decreased [Fatal]
  - Heart rate decreased [Fatal]
  - Nausea [Fatal]
  - Diarrhoea [Fatal]
  - Erythema [Fatal]
  - Fatigue [Fatal]
  - Hyperglycaemia [Fatal]
  - Injection site pain [Fatal]
  - Needle issue [Fatal]
  - Product residue present [Fatal]
  - Abdominal distension [Fatal]
  - Influenza [Fatal]
  - Intestinal obstruction [Fatal]
  - Pain [Fatal]
  - Burning sensation [Fatal]
  - Cough [Fatal]
  - Feeding disorder [Fatal]
  - Inappropriate schedule of product administration [Fatal]
  - Anal incontinence [Fatal]
  - Blood pressure diastolic decreased [Fatal]
  - Blood urine present [Fatal]
  - Incorrect dose administered [Fatal]
